FAERS Safety Report 20520917 (Version 1)
Quarter: 2022Q1

REPORT INFORMATION
  Report Type: Spontaneous
  Country: US (occurrence: US)
  Receive Date: 20220225
  Receipt Date: 20220225
  Transmission Date: 20220423
  Serious: Yes (Hospitalization, Other)
  Sender: FDA-Public Use
  Company Number: US-JAZZ-2022-US-004225

PATIENT
  Age: 14 Year
  Sex: Male
  Weight: 130.4 kg

DRUGS (11)
  1. ASPARAGINASE [Suspect]
     Active Substance: ASPARAGINASE
     Indication: Acute lymphocytic leukaemia
     Dosage: DAYS 3, 5, 7, 9 ,11, 15, 43, 45
     Route: 042
     Dates: start: 20200916
  2. RUXOLITINIB [Suspect]
     Active Substance: RUXOLITINIB
     Indication: Acute lymphocytic leukaemia
     Dosage: DAYS 1-14, 29-42
     Route: 048
     Dates: start: 20200914, end: 20201031
  3. RUXOLITINIB [Suspect]
     Active Substance: RUXOLITINIB
     Dosage: DAYS 1-14, 29-42
     Route: 048
     Dates: start: 20201101
  4. DOXORUBICIN [Suspect]
     Active Substance: DOXORUBICIN
     Indication: Acute lymphocytic leukaemia
     Dosage: DAYS 1, 8, 15
     Route: 042
     Dates: start: 20200914
  5. DEXAMETHASONE [Suspect]
     Active Substance: DEXAMETHASONE
     Indication: Acute lymphocytic leukaemia
     Dosage: DAYS 1-7, 15-21
     Route: 048
     Dates: start: 20200914
  6. METHOTREXATE [Suspect]
     Active Substance: METHOTREXATE
     Indication: Acute lymphocytic leukaemia
     Dosage: DAY 36
     Route: 037
     Dates: start: 20200914
  7. VINCRISTINE [Suspect]
     Active Substance: VINCRISTINE
     Indication: Acute lymphocytic leukaemia
     Dosage: DAYS 1, 8, 15, 43
     Route: 042
     Dates: start: 20200914
  8. CYCLOPHOSPHAMIDE [Suspect]
     Active Substance: CYCLOPHOSPHAMIDE
     Indication: Acute lymphocytic leukaemia
     Dosage: DAY 29
     Route: 042
     Dates: start: 20201021
  9. CYTARABINE [Suspect]
     Active Substance: CYTARABINE
     Indication: Acute lymphocytic leukaemia
     Dosage: DAYS 29-32, 36-39
     Route: 042
     Dates: start: 20201021
  10. THIOGUANINE [Suspect]
     Active Substance: THIOGUANINE
     Indication: Acute lymphocytic leukaemia
     Dosage: DAYS 29-42
     Route: 048
     Dates: start: 20201021, end: 20201031
  11. THIOGUANINE [Suspect]
     Active Substance: THIOGUANINE
     Dosage: DAYS 29-42
     Route: 048
     Dates: start: 20201101

REACTIONS (2)
  - COVID-19 pneumonia [Recovered/Resolved]
  - Respiratory distress [Recovered/Resolved]

NARRATIVE: CASE EVENT DATE: 20201031
